FAERS Safety Report 19456429 (Version 1)
Quarter: 2021Q2

REPORT INFORMATION
  Report Type: Spontaneous
  Country: US (occurrence: US)
  Receive Date: 20210624
  Receipt Date: 20210624
  Transmission Date: 20210717
  Serious: No
  Sender: FDA-Public Use
  Company Number: US-STRIDES ARCOLAB LIMITED-2021SP006120

PATIENT
  Age: 55 Year
  Sex: Female

DRUGS (5)
  1. MYCOPHENOLATE MOFETIL. [Suspect]
     Active Substance: MYCOPHENOLATE MOFETIL
     Indication: LICHEN PLANUS
     Dosage: 2500 MILLIGRAM, QD
     Route: 065
  2. CLOBETASOL 0.05% [Suspect]
     Active Substance: CLOBETASOL
     Indication: LICHEN PLANUS
     Dosage: 0.05 PERCENT, BID
     Route: 065
  3. PREDNISOLONE. [Suspect]
     Active Substance: PREDNISOLONE
     Dosage: 15 MILLIGRAM, QD
     Route: 065
  4. METHOTREXATE. [Suspect]
     Active Substance: METHOTREXATE
     Indication: LICHEN PLANUS
     Dosage: 40 MILLIGRAM, WEEKLY ONCE
     Route: 065
  5. PREDNISOLONE. [Suspect]
     Active Substance: PREDNISOLONE
     Indication: LICHEN PLANUS
     Dosage: 20 MILLIGRAM, QD
     Route: 065

REACTIONS (3)
  - Herpes simplex [Recovered/Resolved]
  - Abdominal discomfort [Recovered/Resolved]
  - Off label use [Unknown]
